FAERS Safety Report 11487895 (Version 3)
Quarter: 2015Q4

REPORT INFORMATION
  Report Type: Report from Study
  Country: US (occurrence: US)
  Receive Date: 20150910
  Receipt Date: 20151016
  Transmission Date: 20160304
  Serious: No
  Sender: FDA-Public Use
  Company Number: US-AMGEN-USASP2015089922

PATIENT
  Age: 57 Year
  Sex: Female

DRUGS (1)
  1. ENBREL [Suspect]
     Active Substance: ETANERCEPT
     Indication: RHEUMATOID ARTHRITIS
     Dosage: 50 MG, UNK
     Route: 065

REACTIONS (20)
  - Injection site erythema [Unknown]
  - Tension [Unknown]
  - Anxiety [Unknown]
  - Pruritus [Unknown]
  - Headache [Unknown]
  - Injection site reaction [Unknown]
  - Injection site pruritus [Unknown]
  - Erythema [Unknown]
  - Injection site bruising [Unknown]
  - Injection site swelling [Unknown]
  - Injection site macule [Unknown]
  - Injection site discolouration [Unknown]
  - Skin reaction [Unknown]
  - Formication [Unknown]
  - Wrong technique in product usage process [Unknown]
  - Injection site urticaria [Unknown]
  - Injection site haemorrhage [Unknown]
  - Urticaria [Unknown]
  - Stress at work [Unknown]
  - Dry skin [Unknown]

NARRATIVE: CASE EVENT DATE: 20150827
